FAERS Safety Report 5157334-5 (Version None)
Quarter: 2006Q4

REPORT INFORMATION
  Report Type: 
  Country: None (occurrence: None)
  Receive Date: 20061127
  Receipt Date: 20030825
  Transmission Date: 20070319
  Serious: Yes (Hospitalization, Disabling)
  Sender: FDA-Public Use
  Company Number: US-ROCHE-345207

PATIENT
  Age: 24 Year
  Sex: Male
  Weight: 73.5 kg

DRUGS (1)
  1. ACCUTANE [Suspect]
     Indication: ACNE
     Route: 048
     Dates: start: 19950622, end: 19951019

REACTIONS (59)
  - ABDOMINAL ABSCESS [None]
  - ADJUSTMENT DISORDER [None]
  - ANAESTHETIC COMPLICATION [None]
  - ANAL FISSURE [None]
  - ANAL FISTULA [None]
  - ANGER [None]
  - ARTHRALGIA [None]
  - ASCITES [None]
  - AXILLARY MASS [None]
  - BLOOD CHOLESTEROL INCREASED [None]
  - BLOOD FOLATE INCREASED [None]
  - BLOOD TESTOSTERONE DECREASED [None]
  - CAT SCRATCH DISEASE [None]
  - CELLULITIS [None]
  - CHAPPED LIPS [None]
  - CHOLELITHIASIS [None]
  - COLITIS [None]
  - COLITIS ULCERATIVE [None]
  - CONSTIPATION [None]
  - CONVULSION [None]
  - CROHN'S DISEASE [None]
  - DECREASED APPETITE [None]
  - DEPRESSION [None]
  - DUODENAL ULCER [None]
  - DYSPNOEA [None]
  - ENCEPHALOPATHY [None]
  - EPIDIDYMAL CYST [None]
  - EYE IRRITATION [None]
  - FAECAL INCONTINENCE [None]
  - FALL [None]
  - FUNGAL INFECTION [None]
  - GASTRIC ULCER [None]
  - GASTRITIS [None]
  - GASTROENTERITIS [None]
  - GRAM STAIN POSITIVE [None]
  - GRANULOMA [None]
  - HAND FRACTURE [None]
  - HIATUS HERNIA [None]
  - HYPERHIDROSIS [None]
  - HYPOGLYCAEMIA [None]
  - ILEUS PARALYTIC [None]
  - INFLAMMATORY BOWEL DISEASE [None]
  - INSOMNIA [None]
  - LEGIONELLA INFECTION [None]
  - LYMPHADENOPATHY [None]
  - MOOD SWINGS [None]
  - NIGHT SWEATS [None]
  - OCULAR HYPERAEMIA [None]
  - OEDEMA PERIPHERAL [None]
  - OPIATES POSITIVE [None]
  - PERIRECTAL ABSCESS [None]
  - PNEUMONIA [None]
  - POUCHITIS [None]
  - PYREXIA [None]
  - RECTAL ABSCESS [None]
  - SEROMA [None]
  - SMALL INTESTINAL OBSTRUCTION [None]
  - TESTICULAR SWELLING [None]
  - WEIGHT DECREASED [None]
